FAERS Safety Report 9987983 (Version 2)
Quarter: 2014Q1

REPORT INFORMATION
  Report Type: Spontaneous
  Country: US (occurrence: US)
  Receive Date: 20140307
  Receipt Date: 20140307
  Transmission Date: 20141002
  Serious: Yes (Death, Hospitalization, Other)
  Sender: FDA-Public Use
  Company Number: US-ASTELLAS-2014US000584

PATIENT
  Age: 65 Year
  Sex: Male
  Weight: 71 kg

DRUGS (3)
  1. XTANDI [Suspect]
     Indication: PROSTATE CANCER
     Dosage: 160 MG, UID/QD
     Route: 048
     Dates: start: 20130918, end: 201312
  2. LUPRON [Concomitant]
     Indication: PROSTATE CANCER
     Dosage: UNK
     Route: 065
  3. XGEVA [Concomitant]
     Indication: PROSTATE CANCER
     Dosage: UNK
     Route: 065

REACTIONS (14)
  - Pancytopenia [Unknown]
  - Aphasia [Unknown]
  - Anaemia [Unknown]
  - Platelet count decreased [Unknown]
  - Postoperative wound infection [Unknown]
  - Malignant neoplasm progression [Fatal]
  - Fall [Unknown]
  - Confusional state [Unknown]
  - Liver function test abnormal [Unknown]
  - Constipation [Unknown]
  - Decreased appetite [Unknown]
  - Weight decreased [Unknown]
  - Back pain [Unknown]
  - Fatigue [Unknown]
